FAERS Safety Report 17023086 (Version 1)
Quarter: 2019Q4

REPORT INFORMATION
  Report Type: Spontaneous
  Country: US (occurrence: US)
  Receive Date: 20191112
  Receipt Date: 20191112
  Transmission Date: 20200122
  Serious: No
  Sender: FDA-Public Use
  Company Number: US-VIFOR (INTERNATIONAL) INC.-VIT-2019-11300

PATIENT
  Age: 75 Year
  Sex: Male

DRUGS (15)
  1. GLIMEPIRIDE. [Concomitant]
     Active Substance: GLIMEPIRIDE
  2. TORSEMIDE. [Concomitant]
     Active Substance: TORSEMIDE
  3. NYSTATIN. [Concomitant]
     Active Substance: NYSTATIN
  4. TRIAMCINOLON [Concomitant]
  5. CALCITRIOL. [Concomitant]
     Active Substance: CALCITRIOL
  6. CLOPIDOGREL [Concomitant]
     Active Substance: CLOPIDOGREL BISULFATE
  7. IRBESARTAN. [Concomitant]
     Active Substance: IRBESARTAN
  8. SIMVASTATIN. [Concomitant]
     Active Substance: SIMVASTATIN
  9. FINASTERIDE. [Concomitant]
     Active Substance: FINASTERIDE
  10. NITROGLYCERINE [Concomitant]
     Active Substance: NITROGLYCERIN
  11. SODIUM BICARBONATE. [Concomitant]
     Active Substance: SODIUM BICARBONATE
  12. VALSARTAN. [Concomitant]
     Active Substance: VALSARTAN
  13. VELTASSA [Suspect]
     Active Substance: PATIROMER
  14. CALCIUM ACETATE. [Concomitant]
     Active Substance: CALCIUM ACETATE
  15. AMLODIPINE [Concomitant]
     Active Substance: AMLODIPINE BESYLATE

REACTIONS (3)
  - Dyspepsia [Not Recovered/Not Resolved]
  - Gastrointestinal motility disorder [Not Recovered/Not Resolved]
  - Inappropriate schedule of product administration [Unknown]

NARRATIVE: CASE EVENT DATE: 20180731
